FAERS Safety Report 19179960 (Version 3)
Quarter: 2021Q2

REPORT INFORMATION
  Report Type: Other
  Country: PT (occurrence: PT)
  Receive Date: 20210426
  Receipt Date: 20210630
  Transmission Date: 20210717
  Serious: Yes (Other)
  Sender: FDA-Public Use
  Company Number: PT-ROCHE-2801989

PATIENT
  Sex: Male

DRUGS (10)
  1. SUPRALIP [Concomitant]
     Active Substance: FENOFIBRATE
  2. PRAVASTATINA [Concomitant]
     Active Substance: PRAVASTATIN SODIUM
     Dosage: 40 MG DAILY
  3. OMEPRAZOLE. [Concomitant]
     Active Substance: OMEPRAZOLE
     Dosage: IN FASTING
  4. ESBRIET [Suspect]
     Active Substance: PIRFENIDONE
     Dosage: ONGOING : YES
     Route: 048
     Dates: start: 20210422
  5. UNILAN [Concomitant]
     Dosage: 1 AT NIGHT
  6. TRITICUM [Concomitant]
     Active Substance: TRAZODONE HYDROCHLORIDE
     Dosage: 1/3 AT NIGHT
  7. CLOPIDOGREL [Concomitant]
     Active Substance: CLOPIDOGREL BISULFATE
     Dosage: 1 TAB DAILY
  8. ESBRIET [Suspect]
     Active Substance: PIRFENIDONE
     Indication: IDIOPATHIC PULMONARY FIBROSIS
     Dosage: ONGOING: NO
     Route: 048
     Dates: start: 20201117, end: 20210408
  9. PRADAXA [Concomitant]
     Active Substance: DABIGATRAN ETEXILATE MESYLATE
     Dosage: ONE TAB AT MORNING ONE TAB AT NIGHT
     Route: 048
  10. OLMESARTAN [Concomitant]
     Active Substance: OLMESARTAN

REACTIONS (6)
  - Sunburn [Recovering/Resolving]
  - Chapped lips [Recovered/Resolved]
  - Poor peripheral circulation [Recovering/Resolving]
  - Sunburn [Recovering/Resolving]
  - Decreased appetite [Recovered/Resolved]
  - Erythema [Recovering/Resolving]

NARRATIVE: CASE EVENT DATE: 20210412
